FAERS Safety Report 24358900 (Version 5)
Quarter: 2024Q4

REPORT INFORMATION
  Report Type: Spontaneous
  Country: US (occurrence: US)
  Receive Date: 20240924
  Receipt Date: 20241203
  Transmission Date: 20250114
  Serious: No
  Sender: PFIZER
  Company Number: US-PFIZER INC-202400254839

PATIENT
  Age: 4 Year
  Sex: Male
  Weight: 12.1 kg

DRUGS (2)
  1. GENOTROPIN [Suspect]
     Active Substance: SOMATROPIN
     Indication: Failure to thrive
     Dosage: 0.5 MG/0.5 CC, 6 DAYS PER WEEK
     Dates: start: 202409, end: 20240930
  2. CYPROHEPTADINE [Concomitant]
     Active Substance: CYPROHEPTADINE
     Dosage: 2.5 ML, ONCE A DAY DURING BED TIME

REACTIONS (4)
  - Device use error [Unknown]
  - Drug dose omission by device [Unknown]
  - Device breakage [Unknown]
  - Device user interface issue [Unknown]

NARRATIVE: CASE EVENT DATE: 20241001
